FAERS Safety Report 10658133 (Version 3)
Quarter: 2015Q1

REPORT INFORMATION
  Report Type: Spontaneous
  Country: IT (occurrence: IT)
  Receive Date: 20141217
  Receipt Date: 20150223
  Transmission Date: 20150720
  Serious: Yes (Hospitalization, Other)
  Sender: FDA-Public Use
  Company Number: IT-TEVA-528677ISR

PATIENT
  Age: 63 Year
  Sex: Male

DRUGS (6)
  1. ALENDRONIC ACID [Suspect]
     Active Substance: ALENDRONIC ACID
     Indication: OSTEOPOROSIS
     Dosage: 70 MG WEEKLY
     Route: 048
     Dates: start: 20140403, end: 20140604
  2. DERUSEL [Concomitant]
     Indication: PRODUCT USED FOR UNKNOWN INDICATION
     Dosage: 600 MG
     Route: 048
  3. DIAZEPAM. [Concomitant]
     Active Substance: DIAZEPAM
     Indication: PRODUCT USED FOR UNKNOWN INDICATION
     Dosage: 10 GTT
     Route: 048
  4. FOLINA [Concomitant]
     Active Substance: FOLIC ACID
     Dosage: AT 8:00 A.M
  5. DIBASE [Concomitant]
     Active Substance: CHOLECALCIFEROL
     Dosage: 20 DROPS WEEKLY (EVERY WEDNESDAY)
  6. GABAPENTIN TEVA PHARMA - 300 MG CAPSULE RIGIDE [Concomitant]
     Indication: PRODUCT USED FOR UNKNOWN INDICATION
     Dosage: 600 MG
     Route: 048

REACTIONS (5)
  - Hypotension [Unknown]
  - Oesophageal ulcer [Recovered/Resolved]
  - Melaena [Unknown]
  - Anaemia [Recovered/Resolved]
  - Cholecystitis acute [Unknown]

NARRATIVE: CASE EVENT DATE: 20140812
